FAERS Safety Report 10342571 (Version 1)
Quarter: 2014Q3

REPORT INFORMATION
  Report Type: Spontaneous
  Country: US (occurrence: US)
  Receive Date: 20140725
  Receipt Date: 20140725
  Transmission Date: 20150326
  Serious: Yes (Hospitalization, Other)
  Sender: FDA-Public Use
  Company Number: US-ALLERGAN-1416217US

PATIENT
  Age: 68 Year
  Sex: Female

DRUGS (1)
  1. BOTOX [Suspect]
     Active Substance: ONABOTULINUMTOXINA
     Indication: TARDIVE DYSKINESIA
     Dosage: 90 UNITS, SINGLE

REACTIONS (4)
  - Dysphagia [Recovered/Resolved]
  - Off label use [Unknown]
  - Breath sounds abnormal [Recovered/Resolved]
  - Dehydration [Recovered/Resolved]
